FAERS Safety Report 14931079 (Version 2)
Quarter: 2018Q3

REPORT INFORMATION
  Report Type: Spontaneous
  Country: EE (occurrence: EE)
  Receive Date: 20180524
  Receipt Date: 20180727
  Transmission Date: 20181010
  Serious: Yes (Other)
  Sender: FDA-Public Use
  Company Number: EE-AMGEN-ESTSP2018067779

PATIENT
  Age: 15 Year
  Sex: Female
  Weight: 36 kg

DRUGS (1)
  1. ARANESP [Suspect]
     Active Substance: DARBEPOETIN ALFA
     Indication: ANAEMIA
     Dosage: 30 MUG, QWK
     Route: 065

REACTIONS (3)
  - Atypical haemolytic uraemic syndrome [Unknown]
  - Drug ineffective [Unknown]
  - Renal impairment [Unknown]
